FAERS Safety Report 5011765-2 (Version None)
Quarter: 2006Q2

REPORT INFORMATION
  Report Type: 
  Country: None (occurrence: None)
  Receive Date: 20060526
  Receipt Date: 20051116
  Transmission Date: 20061013
  Serious: Yes (Hospitalization)
  Sender: FDA-Public Use
  Company Number: US-AVENTIS-200519520US

PATIENT
  Sex: Female
  Weight: 56.7 kg

DRUGS (3)
  1. CARAC [Suspect]
     Indication: SKIN CANCER
     Dosage: DOSE: UNK
     Route: 061
     Dates: start: 20051013, end: 20051030
  2. FOSAMAX [Concomitant]
     Indication: OSTEOPOROSIS
     Dosage: DOSE: UNK
  3. DETROL [Concomitant]
     Indication: INCONTINENCE
     Dosage: DOSE: UNK

REACTIONS (10)
  - BALANCE DISORDER [None]
  - DIFFICULTY IN WALKING [None]
  - DIZZINESS [None]
  - HYPOACUSIS [None]
  - MIDDLE EAR EFFUSION [None]
  - NAUSEA [None]
  - TINNITUS [None]
  - VERTIGO [None]
  - VISION BLURRED [None]
  - VOMITING [None]
